FAERS Safety Report 16276240 (Version 1)
Quarter: 2019Q2

REPORT INFORMATION
  Report Type: Spontaneous
  Country: GB (occurrence: GB)
  Receive Date: 20190506
  Receipt Date: 20190506
  Transmission Date: 20190711
  Serious: Yes (Hospitalization)
  Sender: FDA-Public Use
  Company Number: GB-TEVA-2019-GB-1045192

PATIENT
  Age: 87 Year
  Sex: Female

DRUGS (15)
  1. MORPHINE SULFATE. [Suspect]
     Active Substance: MORPHINE SULFATE
     Indication: PAIN
     Route: 048
     Dates: start: 20190331, end: 20190331
  2. CLOPIDOGREL [Concomitant]
     Active Substance: CLOPIDOGREL BISULFATE
  3. DERMOL [Concomitant]
     Active Substance: BENZALKONIUM CHLORIDE\CHLORHEXIDINE HYDROCHLORIDE\ISOPROPYL MYRISTATE\PARAFFIN
  4. NITROFURANTOIN. [Concomitant]
     Active Substance: NITROFURANTOIN
  5. CLARITHROMYCIN. [Concomitant]
     Active Substance: CLARITHROMYCIN
  6. CODEINE [Concomitant]
     Active Substance: CODEINE
  7. ENOXAPARIN [Concomitant]
     Active Substance: ENOXAPARIN
  8. OMEPRAZOLE. [Concomitant]
     Active Substance: OMEPRAZOLE
  9. AMLODIPINE [Concomitant]
     Active Substance: AMLODIPINE BESYLATE
  10. IRBESARTAN. [Concomitant]
     Active Substance: IRBESARTAN
  11. PARACETAMOL [Concomitant]
     Active Substance: ACETAMINOPHEN
  12. AMOXICILLIN. [Concomitant]
     Active Substance: AMOXICILLIN
  13. BUMETANIDE. [Concomitant]
     Active Substance: BUMETANIDE
  14. ATORVASTATIN [Concomitant]
     Active Substance: ATORVASTATIN
  15. SITAGLIPTIN [Concomitant]
     Active Substance: SITAGLIPTIN

REACTIONS (6)
  - Somnolence [Recovered/Resolved]
  - Confusional state [Recovered/Resolved]
  - Toxicity to various agents [Recovered/Resolved]
  - Miosis [Recovered/Resolved]
  - Abdominal tenderness [Unknown]
  - Constipation [Unknown]

NARRATIVE: CASE EVENT DATE: 20190331
